FAERS Safety Report 11155907 (Version 1)
Quarter: 2015Q2

REPORT INFORMATION
  Report Type: Spontaneous
  Country: US (occurrence: US)
  Receive Date: 20150602
  Receipt Date: 20150602
  Transmission Date: 20150821
  Serious: Yes (Hospitalization)
  Sender: FDA-Public Use
  Company Number: US-BAYER-2015-274754

PATIENT
  Age: 27 Year
  Sex: Male

DRUGS (1)
  1. ROMILAR [Suspect]
     Active Substance: DEXTROMETHORPHAN HYDROBROMIDE

REACTIONS (3)
  - Overdose [None]
  - Drug abuse [None]
  - Nephrolithiasis [None]
